FAERS Safety Report 9935302 (Version 2)
Quarter: 2014Q1

REPORT INFORMATION
  Report Type: Spontaneous
  Country: AU (occurrence: AU)
  Receive Date: 20140228
  Receipt Date: 20140312
  Transmission Date: 20141002
  Serious: Yes (Hospitalization)
  Sender: FDA-Public Use
  Company Number: AU-ELI_LILLY_AND_COMPANY-AU201402008223

PATIENT
  Sex: Female

DRUGS (1)
  1. HUMALOG LISPRO [Suspect]
     Indication: DIABETES MELLITUS
     Dosage: UNK
     Route: 065

REACTIONS (9)
  - Fall [Recovered/Resolved]
  - Fall [Unknown]
  - Arthritis [Unknown]
  - Visual acuity reduced [Unknown]
  - Blood glucose increased [Recovered/Resolved]
  - Motor dysfunction [Unknown]
  - Skin ulcer [Unknown]
  - Blood glucose decreased [Unknown]
  - Blood glucose decreased [Unknown]
